FAERS Safety Report 8056169-3 (Version None)
Quarter: 2012Q1

REPORT INFORMATION
  Report Type: 
  Country: None (occurrence: None)
  Receive Date: 20120119
  Receipt Date: 20120109
  Transmission Date: 20120608
  Serious: Yes (Hospitalization, Other)
  Sender: FDA-Public Use
  Company Number: US-BAYER-2010-002238

PATIENT
  Age: 31 Year
  Sex: Female
  Weight: 63 kg

DRUGS (2)
  1. FLONASE [Concomitant]
  2. YASMIN [Suspect]
     Indication: PRODUCT USED FOR UNKNOWN INDICATION
     Dosage: UNK
     Dates: start: 20060701, end: 20061001

REACTIONS (11)
  - PULMONARY EMBOLISM [None]
  - FEAR [None]
  - PAIN [None]
  - PANCREATITIS [None]
  - ANXIETY [None]
  - ANHEDONIA [None]
  - CEREBROVASCULAR ACCIDENT [None]
  - QUALITY OF LIFE DECREASED [None]
  - DEEP VEIN THROMBOSIS [None]
  - INJURY [None]
  - RETINAL VASCULAR OCCLUSION [None]
